FAERS Safety Report 6600247-X (Version None)
Quarter: 2010Q1

REPORT INFORMATION
  Report Type: 
  Country: None (occurrence: None)
  Receive Date: 20100224
  Receipt Date: 20100212
  Transmission Date: 20100710
  Serious: Yes (Other)
  Sender: FDA-Public Use
  Company Number: DE-PFIZER INC-2010018764

PATIENT
  Age: 68 Year
  Sex: Male
  Weight: 65 kg

DRUGS (5)
  1. SUTENT [Suspect]
     Indication: RENAL CELL CARCINOMA
     Dosage: UNK
     Dates: start: 20080601, end: 20090501
  2. DIOVANE [Concomitant]
     Dosage: 80 MG, 1X/DAY
  3. AMLODIPINE [Concomitant]
     Dosage: 5 MG, 1X/DAY
  4. PANTOPRAZOL [Concomitant]
     Dosage: UNK
  5. TEPILTA [Concomitant]
     Dosage: UNK

REACTIONS (9)
  - DIARRHOEA [None]
  - DISEASE PROGRESSION [None]
  - DYSPHAGIA [None]
  - GLOSSODYNIA [None]
  - HICCUPS [None]
  - INFECTION [None]
  - LEUKOPENIA [None]
  - LUNG CONSOLIDATION [None]
  - RENAL CELL CARCINOMA [None]
